FAERS Safety Report 12639631 (Version 1)
Quarter: 2016Q3

REPORT INFORMATION
  Report Type: Report from Study
  Country: DE (occurrence: DE)
  Receive Date: 20160810
  Receipt Date: 20160810
  Transmission Date: 20161109
  Serious: Yes (Hospitalization)
  Sender: FDA-Public Use
  Company Number: DE-ROCHE-1809461

PATIENT
  Age: 44 Year
  Sex: Male

DRUGS (11)
  1. RITUXIMAB [Suspect]
     Active Substance: RITUXIMAB
     Indication: MALIGNANT LYMPHOID NEOPLASM
     Route: 065
  2. DEXAMETHASONE. [Suspect]
     Active Substance: DEXAMETHASONE
     Indication: MALIGNANT LYMPHOID NEOPLASM
     Route: 065
     Dates: start: 20100528, end: 20100603
  3. CARMUSTINE [Suspect]
     Active Substance: CARMUSTINE
     Indication: MALIGNANT LYMPHOID NEOPLASM
     Route: 065
     Dates: start: 20100528, end: 20100603
  4. RITUXIMAB [Suspect]
     Active Substance: RITUXIMAB
     Indication: MANTLE CELL LYMPHOMA
  5. ETOPOSIDE. [Suspect]
     Active Substance: ETOPOSIDE
     Indication: MALIGNANT LYMPHOID NEOPLASM
     Route: 065
     Dates: start: 20100528, end: 20100603
  6. MELPHALAN [Suspect]
     Active Substance: MELPHALAN
     Indication: MANTLE CELL LYMPHOMA
  7. CYTARABINE. [Suspect]
     Active Substance: CYTARABINE
     Indication: MANTLE CELL LYMPHOMA
  8. ETOPOSIDE. [Suspect]
     Active Substance: ETOPOSIDE
     Indication: MANTLE CELL LYMPHOMA
  9. MELPHALAN [Suspect]
     Active Substance: MELPHALAN
     Indication: MALIGNANT LYMPHOID NEOPLASM
     Route: 065
     Dates: start: 20100528, end: 20100603
  10. DEXAMETHASONE. [Suspect]
     Active Substance: DEXAMETHASONE
     Indication: MANTLE CELL LYMPHOMA
  11. CYTARABINE. [Suspect]
     Active Substance: CYTARABINE
     Indication: MALIGNANT LYMPHOID NEOPLASM
     Route: 065
     Dates: start: 20100528, end: 20100603

REACTIONS (4)
  - General physical health deterioration [Recovered/Resolved]
  - C-reactive protein increased [Recovered/Resolved]
  - Staphylococcus test positive [Recovered/Resolved]
  - Febrile bone marrow aplasia [Recovered/Resolved]

NARRATIVE: CASE EVENT DATE: 20100611
